FAERS Safety Report 6554185-1 (Version None)
Quarter: 2010Q1

REPORT INFORMATION
  Report Type: 
  Country: None (occurrence: None)
  Receive Date: 20100127
  Receipt Date: 20100115
  Transmission Date: 20100710
  Serious: Yes (Death)
  Sender: FDA-Public Use
  Company Number: JP-PFIZER INC-2009302404

PATIENT
  Age: 85 Year
  Sex: Female

DRUGS (1)
  1. ZYVOX [Suspect]
     Dosage: 600 MG, 2X/DAY
     Route: 042
     Dates: start: 20091112

REACTIONS (3)
  - PLATELET COUNT DECREASED [None]
  - SEPSIS [None]
  - WHITE BLOOD CELL COUNT DECREASED [None]
